FAERS Safety Report 9160111 (Version 2)
Quarter: 2013Q1

REPORT INFORMATION
  Report Type: Spontaneous
  Country: US (occurrence: None)
  Receive Date: 20130220
  Receipt Date: 20130318
  Transmission Date: 20140127
  Serious: Yes (Hospitalization)
  Sender: FDA-Public Use
  Company Number: 1212-794

PATIENT
  Age: 73 Year
  Sex: Female
  Weight: 66.23 kg

DRUGS (11)
  1. VEGF TRAP-EYE [Suspect]
     Dosage: INTRAVITREAL
     Dates: start: 20121022
  2. LISINOPRIL(LISINOPRIL) [Concomitant]
  3. HCTZ(HYDROCHLOROTHIAZIDE) [Concomitant]
  4. LANTUS INSUIN(INSULIN GLARGINE) [Concomitant]
  5. NOVOLOG FLEXPEN(INSULIN ASPART) [Concomitant]
  6. VITAMIN D2(ERGOCALCIFEROL) [Concomitant]
  7. CRESTOR(ROSUVASTATIN CALCIUM) [Concomitant]
  8. SUPER CALCIUIM(CALCIUM D3 ) [Concomitant]
  9. ASPIRIN(ACETYLSALICYLIC ACID) [Concomitant]
  10. DIOVAN(VALSARTAN) [Concomitant]
  11. PRAVASTATIN(PRAVASTATIN) [Concomitant]

REACTIONS (24)
  - Muscular weakness [None]
  - Cholelithiasis [None]
  - Facial paresis [None]
  - Blood creatinine increased [None]
  - Blood urea increased [None]
  - Blood glucose increased [None]
  - Red blood cell sedimentation rate increased [None]
  - Transferrin saturation decreased [None]
  - Brain stem infarction [None]
  - Arterial stenosis [None]
  - Left ventricular hypertrophy [None]
  - Tricuspid valve incompetence [None]
  - Mitral valve incompetence [None]
  - Nausea [None]
  - Vomiting [None]
  - Urinary incontinence [None]
  - Gallbladder polyp [None]
  - Culture urine positive [None]
  - Escherichia test positive [None]
  - Pathogen resistance [None]
  - Anaemia [None]
  - Depression [None]
  - Renal failure chronic [None]
  - Condition aggravated [None]
